FAERS Safety Report 8563960-3 (Version None)
Quarter: 2012Q3

REPORT INFORMATION
  Report Type: 
  Country: None (occurrence: None)
  Receive Date: 20120803
  Receipt Date: 20120730
  Transmission Date: 20120928
  Serious: Yes (Other)
  Sender: FDA-Public Use
  Company Number: PHHY2012AU044855

PATIENT
  Sex: Male
  Weight: 74 kg

DRUGS (4)
  1. ZOLEDRONOC ACID [Suspect]
     Indication: OSTEOPOROSIS
     Dosage: 5 MG, UNK
     Route: 042
     Dates: start: 20110204
  2. ZOLEDRONOC ACID [Suspect]
     Dosage: 5 MG, UNK
     Route: 042
     Dates: start: 20120223
  3. BISPHOSPHONATES [Concomitant]
  4. ACTONEL WITH CALCIUM (COPACKAGED) [Concomitant]
     Indication: OSTEOPOROSIS
     Dosage: UNK
     Route: 048
     Dates: start: 19990324, end: 20110101

REACTIONS (4)
  - ERYTHEMA [None]
  - PAIN [None]
  - ORAL DISORDER [None]
  - OSTEONECROSIS OF JAW [None]
